FAERS Safety Report 8097715-3 (Version None)
Quarter: 2012Q1

REPORT INFORMATION
  Report Type: 
  Country: None (occurrence: None)
  Receive Date: 20120128
  Receipt Date: 20110714
  Transmission Date: 20120608
  Serious: No
  Sender: FDA-Public Use
  Company Number: US-ABBOTT-11P-163-0839003-00

PATIENT
  Sex: Female
  Weight: 74.456 kg

DRUGS (4)
  1. ABILIFY [Concomitant]
     Indication: BIPOLAR DISORDER
  2. DEPAKOTE [Concomitant]
     Indication: BIPOLAR DISORDER
  3. HUMIRA [Suspect]
     Indication: PSORIASIS
     Dates: start: 20110601, end: 20110701
  4. LITHIUM CARBONATE [Suspect]
     Indication: BIPOLAR DISORDER

REACTIONS (4)
  - APHASIA [None]
  - TREMOR [None]
  - PSYCHOMOTOR SKILLS IMPAIRED [None]
  - DRUG DOSE OMISSION [None]
